FAERS Safety Report 5779998-5 (Version None)
Quarter: 2008Q2

REPORT INFORMATION
  Report Type: 
  Country: None (occurrence: None)
  Receive Date: 20080620
  Receipt Date: 20080611
  Transmission Date: 20081010
  Serious: Yes (Hospitalization)
  Sender: FDA-Public Use
  Company Number: US-NOVOPROD-268700

PATIENT
  Age: 15 Year
  Sex: Male
  Weight: 53.2 kg

DRUGS (2)
  1. NORDITROPIN [Suspect]
     Indication: BODY HEIGHT BELOW NORMAL
     Dosage: 2.3 MG, QD
     Route: 058
     Dates: start: 20030301, end: 20080214
  2. NORDITROPIN [Suspect]
     Indication: SMALL FOR DATES BABY

REACTIONS (1)
  - SPINAL CORD INFARCTION [None]
